FAERS Safety Report 6789776-6 (Version None)
Quarter: 2010Q2

REPORT INFORMATION
  Report Type: 
  Country: None (occurrence: None)
  Receive Date: 20100624
  Receipt Date: 20100614
  Transmission Date: 20101027
  Serious: Yes (Other)
  Sender: FDA-Public Use
  Company Number: US-PFIZER INC-2009230596

PATIENT
  Sex: Male
  Weight: 68 kg

DRUGS (4)
  1. LIPITOR [Suspect]
     Dosage: UNK
  2. SITOSTEROL [Concomitant]
     Indication: PROSTATOMEGALY
     Dosage: UNK
  3. NIACINAMIDE [Concomitant]
     Dosage: UNK
  4. VITAMIN C [Concomitant]
     Dosage: 1000 MG, UNK

REACTIONS (5)
  - AMNESIA [None]
  - APHASIA [None]
  - GALLBLADDER OBSTRUCTION [None]
  - MENTAL IMPAIRMENT [None]
  - MYALGIA [None]
